FAERS Safety Report 25918942 (Version 1)
Quarter: 2025Q4

REPORT INFORMATION
  Report Type: Spontaneous
  Country: EU (occurrence: EU)
  Receive Date: 20251014
  Receipt Date: 20251014
  Transmission Date: 20260118
  Serious: Yes (Hospitalization, Other)
  Sender: Haleon PLC
  Company Number: None

PATIENT
  Age: 48 Year
  Sex: Male

DRUGS (1)
  1. NICOTINE [Suspect]
     Active Substance: NICOTINE
     Indication: Product used for unknown indication
     Dosage: ROUTE: RESPIRATORY (INHALATION)

REACTIONS (3)
  - Drug abuse [Not Recovered/Not Resolved]
  - Hypoxia [Recovering/Resolving]
  - Sedation complication [Recovered/Resolved]

NARRATIVE: CASE EVENT DATE: 20250313
